FAERS Safety Report 11515295 (Version 1)
Quarter: 2015Q3

REPORT INFORMATION
  Report Type: Report from Study
  Country: US (occurrence: US)
  Receive Date: 20150916
  Receipt Date: 20150916
  Transmission Date: 20151125
  Serious: Yes (Other)
  Sender: FDA-Public Use
  Company Number: US-NPS_PHARMACEUTICALS-002528

PATIENT
  Age: 33 Year
  Sex: Female

DRUGS (3)
  1. ACTIVE VITAMIN D [Concomitant]
     Dosage: DF
  2. ACTIVE VITAMIN D [Concomitant]
     Dosage: DF DOSE DECREASED
     Dates: start: 20150902
  3. NATPARA (PARATHYROID HORMONE) [Suspect]
     Active Substance: PARATHYROID HORMONE
     Indication: HYPOPARATHYROIDISM
     Route: 058
     Dates: start: 20150901

REACTIONS (2)
  - Hypocalcaemia [Not Recovered/Not Resolved]
  - Hypercalcaemia [Not Recovered/Not Resolved]

NARRATIVE: CASE EVENT DATE: 20150901
